FAERS Safety Report 7982779-5 (Version None)
Quarter: 2011Q4

REPORT INFORMATION
  Report Type: 
  Country: None (occurrence: None)
  Receive Date: 20111215
  Receipt Date: 20111205
  Transmission Date: 20120403
  Serious: Yes (Death, Other)
  Sender: FDA-Public Use
  Company Number: US-BAXTER-2009BH016671

PATIENT
  Age: 46 Year
  Sex: Male

DRUGS (110)
  1. HEPARIN SODIUM 5,000 UNITS IN DEXTROSE 5% [Suspect]
     Route: 041
     Dates: start: 20071007, end: 20071007
  2. HEPARIN SODIUM 5,000 UNITS IN DEXTROSE 5% [Suspect]
     Route: 041
     Dates: start: 20071007, end: 20071008
  3. HEPARIN SODIUM 5,000 UNITS IN DEXTROSE 5% [Suspect]
     Route: 041
     Dates: start: 20071008, end: 20071008
  4. HEPARIN SODIUM 5,000 UNITS IN DEXTROSE 5% [Suspect]
     Route: 041
     Dates: start: 20071010, end: 20071011
  5. HEPARIN SODIUM 5,000 UNITS IN DEXTROSE 5% [Suspect]
     Route: 041
     Dates: start: 20071010, end: 20071011
  6. HEPARIN SODIUM 5,000 UNITS IN DEXTROSE 5% [Suspect]
     Route: 041
     Dates: start: 20071014, end: 20071014
  7. HEPARIN SODIUM INJECTION [Suspect]
     Route: 042
     Dates: start: 20071002, end: 20071002
  8. HEPARIN SODIUM INJECTION [Suspect]
     Route: 042
     Dates: start: 20071011, end: 20071027
  9. HEPARIN SODIUM INJECTION [Suspect]
     Route: 040
     Dates: start: 20071014, end: 20071014
  10. HEPARIN SODIUM INJECTION [Suspect]
     Route: 040
     Dates: start: 20071014, end: 20071014
  11. HEPARIN SODIUM INJECTION [Suspect]
     Indication: CENTRAL VENOUS CATHETERISATION
     Route: 042
     Dates: start: 20070921
  12. ZANTAC [Concomitant]
     Indication: PRODUCT USED FOR UNKNOWN INDICATION
     Route: 065
  13. HEPARIN SODIUM 1,000 UNITS AND SODIUM CHLORIDE 0.9% [Suspect]
     Indication: PRODUCT USED FOR UNKNOWN INDICATION
     Route: 065
  14. HEPARIN SODIUM 5,000 UNITS IN DEXTROSE 5% [Suspect]
     Route: 041
     Dates: start: 20071006, end: 20071007
  15. HEPARIN SODIUM 5,000 UNITS IN DEXTROSE 5% [Suspect]
     Route: 041
     Dates: start: 20071007, end: 20071007
  16. HEPARIN SODIUM INJECTION [Suspect]
     Route: 040
     Dates: start: 20071011, end: 20071014
  17. HEPARIN SODIUM INJECTION [Suspect]
     Route: 040
     Dates: start: 20071011, end: 20071014
  18. HEPARIN SODIUM INJECTION [Suspect]
     Route: 040
     Dates: start: 20071011, end: 20071014
  19. HEPARIN SODIUM INJECTION [Suspect]
     Route: 042
     Dates: start: 20071013, end: 20071013
  20. HEPARIN SODIUM INJECTION [Suspect]
     Route: 040
     Dates: start: 20071013, end: 20071013
  21. HEPARIN SODIUM INJECTION [Suspect]
     Route: 040
     Dates: start: 20071013, end: 20071013
  22. HEPARIN SODIUM INJECTION [Suspect]
     Route: 042
     Dates: start: 20070928, end: 20071026
  23. PANTOPRAZOLE [Concomitant]
     Indication: PRODUCT USED FOR UNKNOWN INDICATION
     Route: 065
  24. XANAX [Concomitant]
     Indication: PRODUCT USED FOR UNKNOWN INDICATION
     Route: 065
  25. HEPARIN SODIUM 5,000 UNITS IN DEXTROSE 5% [Suspect]
     Indication: MESENTERIC VEIN THROMBOSIS
     Route: 041
     Dates: start: 20071004, end: 20071005
  26. HEPARIN SODIUM 5,000 UNITS IN DEXTROSE 5% [Suspect]
     Route: 041
     Dates: start: 20071008, end: 20071008
  27. HEPARIN SODIUM 5,000 UNITS IN DEXTROSE 5% [Suspect]
     Route: 041
     Dates: start: 20071008, end: 20071008
  28. HEPARIN SODIUM 5,000 UNITS IN DEXTROSE 5% [Suspect]
     Route: 041
     Dates: start: 20071008, end: 20071008
  29. HEPARIN SODIUM 5,000 UNITS IN DEXTROSE 5% [Suspect]
     Route: 041
     Dates: start: 20071009, end: 20071009
  30. HEPARIN SODIUM 5,000 UNITS IN DEXTROSE 5% [Suspect]
     Route: 041
     Dates: start: 20071009, end: 20071009
  31. HEPARIN SODIUM 5,000 UNITS IN DEXTROSE 5% [Suspect]
     Route: 041
     Dates: start: 20071013, end: 20071013
  32. HEPARIN SODIUM 5,000 UNITS IN DEXTROSE 5% [Suspect]
     Route: 041
     Dates: start: 20071013, end: 20071013
  33. HEPARIN SODIUM 5,000 UNITS IN DEXTROSE 5% [Suspect]
     Route: 041
     Dates: start: 20071014, end: 20071014
  34. HEPARIN SODIUM 5,000 UNITS IN DEXTROSE 5% [Suspect]
     Route: 041
     Dates: start: 20071014, end: 20071014
  35. HEPARIN SODIUM INJECTION [Suspect]
     Route: 042
     Dates: start: 20071011, end: 20071027
  36. HEPARIN SODIUM INJECTION [Suspect]
     Route: 042
     Dates: start: 20071006, end: 20071006
  37. HEPARIN SODIUM INJECTION [Suspect]
     Route: 042
     Dates: start: 20071006, end: 20071006
  38. HEPARIN SODIUM INJECTION [Suspect]
     Route: 042
     Dates: start: 20071009, end: 20071010
  39. HEPARIN SODIUM INJECTION [Suspect]
     Route: 042
     Dates: start: 20071009, end: 20071010
  40. HEPARIN SODIUM INJECTION [Suspect]
     Route: 042
     Dates: start: 20071013, end: 20071013
  41. HEPARIN SODIUM INJECTION [Suspect]
     Route: 040
     Dates: start: 20071013, end: 20071013
  42. HEPARIN SODIUM INJECTION [Suspect]
     Route: 040
     Dates: start: 20071013, end: 20071013
  43. HEPARIN SODIUM INJECTION [Suspect]
     Route: 040
     Dates: start: 20071013, end: 20071013
  44. FLAGYL [Concomitant]
     Indication: PRODUCT USED FOR UNKNOWN INDICATION
     Route: 065
  45. HEPARIN SODIUM 5,000 UNITS IN DEXTROSE 5% [Suspect]
     Route: 041
     Dates: start: 20071009, end: 20071010
  46. HEPARIN SODIUM 5,000 UNITS IN DEXTROSE 5% [Suspect]
     Route: 041
     Dates: start: 20071013, end: 20071013
  47. HEPARIN SODIUM 5,000 UNITS IN DEXTROSE 5% [Suspect]
     Route: 041
     Dates: start: 20071014, end: 20071014
  48. HEPARIN SODIUM INJECTION [Suspect]
     Route: 040
     Dates: start: 20071012, end: 20071012
  49. HEPARIN SODIUM INJECTION [Suspect]
     Route: 040
     Dates: start: 20071011, end: 20071014
  50. HEPARIN SODIUM INJECTION [Suspect]
     Route: 040
     Dates: start: 20071011, end: 20071014
  51. HEPARIN SODIUM INJECTION [Suspect]
     Route: 042
     Dates: start: 20071009, end: 20071010
  52. HEPARIN SODIUM INJECTION [Suspect]
     Route: 040
     Dates: start: 20071013, end: 20071013
  53. HEPARIN SODIUM INJECTION [Suspect]
     Route: 040
     Dates: start: 20071014, end: 20071014
  54. ALBUMIN (HUMAN) [Concomitant]
     Indication: PRODUCT USED FOR UNKNOWN INDICATION
     Route: 065
  55. MEPERIDINE HCL [Concomitant]
     Indication: PRODUCT USED FOR UNKNOWN INDICATION
     Route: 065
  56. ASCORBIC ACID [Concomitant]
     Indication: PRODUCT USED FOR UNKNOWN INDICATION
     Route: 065
  57. THIAMINE HCL [Concomitant]
     Indication: PRODUCT USED FOR UNKNOWN INDICATION
     Route: 065
  58. LORTAB [Concomitant]
     Indication: PRODUCT USED FOR UNKNOWN INDICATION
     Route: 048
  59. HEPARIN SODIUM 5,000 UNITS IN DEXTROSE 5% [Suspect]
     Indication: SPLENIC VEIN THROMBOSIS
     Route: 041
     Dates: start: 20071004, end: 20071005
  60. HEPARIN SODIUM 5,000 UNITS IN DEXTROSE 5% [Suspect]
     Route: 041
     Dates: start: 20071006, end: 20071007
  61. HEPARIN SODIUM 5,000 UNITS IN DEXTROSE 5% [Suspect]
     Route: 041
     Dates: start: 20071009, end: 20071009
  62. HEPARIN SODIUM 5,000 UNITS IN DEXTROSE 5% [Suspect]
     Route: 041
     Dates: start: 20071011, end: 20071012
  63. HEPARIN SODIUM 5,000 UNITS IN DEXTROSE 5% [Suspect]
     Route: 041
     Dates: start: 20071013, end: 20071013
  64. HEPARIN SODIUM 5,000 UNITS IN DEXTROSE 5% [Suspect]
     Route: 041
     Dates: start: 20071013, end: 20071014
  65. HEPARIN SODIUM 5,000 UNITS IN DEXTROSE 5% [Suspect]
     Route: 041
     Dates: start: 20071014, end: 20071016
  66. HEPARIN SODIUM INJECTION [Suspect]
     Indication: MESENTERIC VEIN THROMBOSIS
     Route: 040
     Dates: start: 20071011, end: 20071011
  67. HEPARIN SODIUM INJECTION [Suspect]
     Route: 040
     Dates: start: 20071012, end: 20071012
  68. HEPARIN SODIUM INJECTION [Suspect]
     Route: 065
     Dates: start: 20070901, end: 20070901
  69. HEPARIN SODIUM INJECTION [Suspect]
     Route: 065
     Dates: start: 20070901, end: 20070901
  70. HEPARIN SODIUM INJECTION [Suspect]
     Route: 042
     Dates: start: 20071011, end: 20071027
  71. HEPARIN SODIUM INJECTION [Suspect]
     Route: 040
     Dates: start: 20071011, end: 20071014
  72. HEPARIN SODIUM 5,000 UNITS IN DEXTROSE 5% [Suspect]
     Route: 041
     Dates: start: 20071006, end: 20071006
  73. HEPARIN SODIUM 5,000 UNITS IN DEXTROSE 5% [Suspect]
     Route: 041
     Dates: start: 20071006, end: 20071006
  74. HEPARIN SODIUM 5,000 UNITS IN DEXTROSE 5% [Suspect]
     Route: 041
     Dates: start: 20071007, end: 20071007
  75. HEPARIN SODIUM 5,000 UNITS IN DEXTROSE 5% [Suspect]
     Route: 041
     Dates: start: 20071007, end: 20071007
  76. HEPARIN SODIUM 5,000 UNITS IN DEXTROSE 5% [Suspect]
     Route: 041
     Dates: start: 20071008, end: 20071008
  77. HEPARIN SODIUM 5,000 UNITS IN DEXTROSE 5% [Suspect]
     Route: 041
     Dates: start: 20071008, end: 20071008
  78. HEPARIN SODIUM 5,000 UNITS IN DEXTROSE 5% [Suspect]
     Route: 041
     Dates: start: 20071014, end: 20071014
  79. HEPARIN SODIUM INJECTION [Suspect]
     Indication: INTRAVENOUS CATHETER MANAGEMENT
     Route: 040
     Dates: start: 20071011, end: 20071011
  80. HEPARIN SODIUM INJECTION [Suspect]
     Route: 065
     Dates: start: 20070901, end: 20070901
  81. HEPARIN SODIUM INJECTION [Suspect]
     Route: 042
     Dates: start: 20071002, end: 20071002
  82. HEPARIN SODIUM INJECTION [Suspect]
     Route: 042
     Dates: start: 20071002, end: 20071002
  83. HEPARIN SODIUM INJECTION [Suspect]
     Route: 042
     Dates: start: 20071019, end: 20071019
  84. HEPARIN SODIUM INJECTION [Suspect]
     Route: 040
     Dates: start: 20071014, end: 20071014
  85. HEPARIN SODIUM 10,000 UNITS IN SODIUM CHLORIDE 0.45% [Suspect]
     Indication: PRODUCT USED FOR UNKNOWN INDICATION
     Route: 065
  86. NYSTATIN [Concomitant]
     Indication: PRODUCT USED FOR UNKNOWN INDICATION
     Route: 061
  87. PHENERGAN [Concomitant]
     Indication: PRODUCT USED FOR UNKNOWN INDICATION
     Route: 065
  88. HEPARIN SODIUM 5,000 UNITS IN DEXTROSE 5% [Suspect]
     Route: 041
     Dates: start: 20071007, end: 20071008
  89. HEPARIN SODIUM 5,000 UNITS IN DEXTROSE 5% [Suspect]
     Route: 041
     Dates: start: 20071009, end: 20071009
  90. HEPARIN SODIUM 5,000 UNITS IN DEXTROSE 5% [Suspect]
     Route: 041
     Dates: start: 20071009, end: 20071010
  91. HEPARIN SODIUM 5,000 UNITS IN DEXTROSE 5% [Suspect]
     Route: 041
     Dates: start: 20071012, end: 20071012
  92. HEPARIN SODIUM 5,000 UNITS IN DEXTROSE 5% [Suspect]
     Route: 041
     Dates: start: 20071014, end: 20071014
  93. HEPARIN SODIUM INJECTION [Suspect]
     Route: 040
     Dates: start: 20071012, end: 20071012
  94. HEPARIN SODIUM INJECTION [Suspect]
     Route: 042
     Dates: start: 20071006, end: 20071006
  95. HEPARIN SODIUM INJECTION [Suspect]
     Route: 042
     Dates: start: 20071006, end: 20071006
  96. HEPARIN SODIUM INJECTION [Suspect]
     Route: 042
     Dates: start: 20071006, end: 20071006
  97. HEPARIN SODIUM INJECTION [Suspect]
     Route: 042
     Dates: start: 20071013, end: 20071013
  98. HEPARIN SODIUM INJECTION [Suspect]
     Route: 042
     Dates: start: 20071019, end: 20071019
  99. AMBIEN [Concomitant]
     Indication: PRODUCT USED FOR UNKNOWN INDICATION
     Route: 065
  100. HEPARIN SODIUM 5,000 UNITS IN DEXTROSE 5% [Suspect]
     Route: 041
     Dates: start: 20071011, end: 20071012
  101. HEPARIN SODIUM 5,000 UNITS IN DEXTROSE 5% [Suspect]
     Route: 041
     Dates: start: 20071012, end: 20071012
  102. HEPARIN SODIUM 5,000 UNITS IN DEXTROSE 5% [Suspect]
     Route: 041
     Dates: start: 20071013, end: 20071014
  103. HEPARIN SODIUM 5,000 UNITS IN DEXTROSE 5% [Suspect]
     Route: 041
     Dates: start: 20071014, end: 20071016
  104. HEPARIN SODIUM INJECTION [Suspect]
     Indication: SPLENIC VEIN THROMBOSIS
     Route: 040
     Dates: start: 20071011, end: 20071011
  105. HEPARIN SODIUM INJECTION [Suspect]
     Route: 042
     Dates: start: 20071006, end: 20071006
  106. HEPARIN SODIUM INJECTION [Suspect]
     Route: 042
     Dates: start: 20071019, end: 20071019
  107. HEPARIN SODIUM INJECTION [Suspect]
     Route: 040
     Dates: start: 20071014, end: 20071014
  108. HEPARIN SODIUM INJECTION [Suspect]
     Route: 040
     Dates: start: 20071014, end: 20071014
  109. OMNICEF [Concomitant]
     Indication: PRODUCT USED FOR UNKNOWN INDICATION
     Route: 065
  110. ACETAMINOPHEN [Concomitant]
     Indication: PRODUCT USED FOR UNKNOWN INDICATION
     Route: 065

REACTIONS (14)
  - RESPIRATORY FAILURE [None]
  - ABDOMINAL COMPARTMENT SYNDROME [None]
  - HEPATIC FAILURE [None]
  - ORGAN FAILURE [None]
  - DYSPNOEA [None]
  - HEPATORENAL SYNDROME [None]
  - BLOOD PRESSURE DECREASED [None]
  - ABDOMINAL PAIN [None]
  - SWELLING [None]
  - FUNCTIONAL GASTROINTESTINAL DISORDER [None]
  - HEPATIC CIRRHOSIS [None]
  - JAUNDICE [None]
  - CARDIAC DISORDER [None]
  - ERYTHEMA [None]
